FAERS Safety Report 9125126 (Version 2)
Quarter: 2013Q1

REPORT INFORMATION
  Report Type: Spontaneous
  Country: US (occurrence: US)
  Receive Date: 20130227
  Receipt Date: 20130310
  Transmission Date: 20140127
  Serious: Yes (Death)
  Sender: FDA-Public Use
  Company Number: US-009507513-1302USA009012

PATIENT
  Age: 30 Year
  Sex: Male

DRUGS (2)
  1. SAPHRIS [Suspect]
     Indication: AFFECTIVE DISORDER
     Dosage: UNK
     Route: 048
  2. WELLBUTRIN [Concomitant]

REACTIONS (2)
  - Death [Fatal]
  - Overdose [Unknown]
